FAERS Safety Report 7938594-1 (Version None)
Quarter: 2011Q4

REPORT INFORMATION
  Report Type: 
  Country: None (occurrence: None)
  Receive Date: 20111123
  Receipt Date: 20111118
  Transmission Date: 20120403
  Serious: Yes (Hospitalization)
  Sender: FDA-Public Use
  Company Number: US-ABBOTT-11P-163-0855675-00

PATIENT
  Sex: Female

DRUGS (7)
  1. ALLERGY SHOTS [Concomitant]
     Indication: HYPERSENSITIVITY
  2. ATARAX [Concomitant]
     Indication: PRURITUS
     Dosage: 1 OR 2 TABLETS EVERY 6 HOURS
     Route: 048
  3. HUMIRA [Suspect]
     Indication: PSORIASIS
     Dates: start: 20080301, end: 20110701
  4. EFFEXOR [Concomitant]
     Indication: DEPRESSION
     Dosage: 150
     Route: 048
     Dates: start: 20060101
  5. ACIPHEX [Concomitant]
     Indication: GASTROOESOPHAGEAL REFLUX DISEASE
  6. NEURONTIN [Concomitant]
     Indication: PRODUCT USED FOR UNKNOWN INDICATION
     Route: 048
  7. DIOVAN [Concomitant]
     Indication: ATRIAL FIBRILLATION
     Dates: start: 20060101

REACTIONS (4)
  - TEMPERATURE REGULATION DISORDER [None]
  - BLOOD POTASSIUM DECREASED [None]
  - DERMATITIS CONTACT [None]
  - FEELING COLD [None]
